FAERS Safety Report 7539854-9 (Version None)
Quarter: 2011Q2

REPORT INFORMATION
  Report Type: 
  Country: None (occurrence: None)
  Receive Date: 20110610
  Receipt Date: 20110527
  Transmission Date: 20111010
  Serious: No
  Sender: FDA-Public Use
  Company Number: US-JNJFOC-20110512797

PATIENT
  Sex: Male

DRUGS (5)
  1. INVEGA SUSTENNA [Suspect]
     Indication: SCHIZOPHRENIA
     Route: 030
  2. INVEGA SUSTENNA [Suspect]
     Route: 030
     Dates: end: 20110101
  3. INVEGA SUSTENNA [Suspect]
     Route: 030
     Dates: start: 20110101, end: 20110101
  4. BENZTROPINE MESYLATE [Concomitant]
     Indication: AKATHISIA
     Route: 065
     Dates: start: 20110101
  5. INVEGA SUSTENNA [Suspect]
     Route: 030

REACTIONS (2)
  - DRUG INEFFECTIVE [None]
  - AKATHISIA [None]
